FAERS Safety Report 14753234 (Version 2)
Quarter: 2018Q2

REPORT INFORMATION
  Report Type: Spontaneous
  Country: US (occurrence: US)
  Receive Date: 20180412
  Receipt Date: 20180416
  Transmission Date: 20180711
  Serious: No
  Sender: FDA-Public Use
  Company Number: US-MYLANLABS-2018M1020154

PATIENT
  Sex: Male
  Weight: 58 kg

DRUGS (1)
  1. LEVETIRACETAM. [Suspect]
     Active Substance: LEVETIRACETAM
     Indication: EPILEPSY
     Dosage: UNK, BID (1500 AM+1500 PM)
     Dates: start: 2001, end: 20180329

REACTIONS (3)
  - Anger [Recovering/Resolving]
  - Mood swings [Unknown]
  - Irritability [Unknown]
